FAERS Safety Report 5370874-9 (Version None)
Quarter: 2007Q2

REPORT INFORMATION
  Report Type: 
  Country: None (occurrence: None)
  Receive Date: 20070626
  Receipt Date: 20070620
  Transmission Date: 20071010
  Serious: Yes (Other)
  Sender: FDA-Public Use
  Company Number: AU-BRISTOL-MYERS SQUIBB COMPANY-13823836

PATIENT
  Age: 90 Year
  Sex: Female
  Weight: 41 kg

DRUGS (4)
  1. DIAFORMIN [Suspect]
     Indication: DIABETES MELLITUS
  2. DAPA-TABS [Concomitant]
     Indication: HYPERTENSION
  3. TENORMIN [Concomitant]
     Indication: HYPERTENSION
  4. ASPIRIN [Concomitant]

REACTIONS (1)
  - WEIGHT DECREASED [None]
